FAERS Safety Report 8816514 (Version 2)
Quarter: 2012Q4

REPORT INFORMATION
  Report Type: Spontaneous
  Country: DK (occurrence: None)
  Receive Date: 20120927
  Receipt Date: 20121012
  Transmission Date: 20130627
  Serious: Yes (Life-Threatening, Hospitalization, Other)
  Sender: FDA-Public Use
  Company Number: 2012MA011569

PATIENT
  Age: 0 Year
  Sex: Female

DRUGS (2)
  1. NIFEDIPINE [Suspect]
     Indication: DRUG USE FOR UNKNOWN INDICATION
     Route: 064
  2. FOLIC ACID [Concomitant]

REACTIONS (12)
  - Caesarean section [None]
  - Foetal growth restriction [None]
  - Neonatal respiratory distress syndrome [None]
  - Oligohydramnios [None]
  - Hyperglycaemia [None]
  - Pneumatosis intestinalis [None]
  - Necrotising enterocolitis neonatal [None]
  - Maternal drugs affecting foetus [None]
  - Premature baby [None]
  - Placental disorder [None]
  - Infantile apnoeic attack [None]
  - Bradycardia neonatal [None]
